FAERS Safety Report 4376309-7 (Version None)
Quarter: 2004Q2

REPORT INFORMATION
  Report Type: 
  Country: None (occurrence: None)
  Receive Date: 20040608
  Receipt Date: 20030422
  Transmission Date: 20050107
  Serious: Yes (Hospitalization)
  Sender: FDA-Public Use
  Company Number: 200311346BCC

PATIENT
  Age: 68 Year
  Sex: Female
  Weight: 68.0396 kg

DRUGS (2)
  1. ALEVE [Suspect]
     Indication: SUICIDE ATTEMPT
     Dosage: 11000 MG, ONCE ORAL
     Route: 048
     Dates: start: 20030420
  2. ANTIDEPRESSANTS [Concomitant]

REACTIONS (4)
  - DIARRHOEA [None]
  - DIZZINESS [None]
  - NAUSEA [None]
  - VOMITING [None]
